FAERS Safety Report 8925499 (Version 1)
Quarter: 2012Q4

REPORT INFORMATION
  Report Type: Spontaneous
  Country: US (occurrence: None)
  Receive Date: 20121126
  Receipt Date: 20121126
  Transmission Date: 20130627
  Serious: Yes (Other)
  Sender: FDA-Public Use
  Company Number: None

PATIENT
  Age: 57 Year
  Sex: Male
  Weight: 108.41 kg

DRUGS (9)
  1. VICTRELIS 200MG MERCK [Suspect]
     Indication: HEPATITIS C
     Dosage: 800mg three times a day po
     Route: 048
     Dates: start: 20111201, end: 20120714
  2. INTERFERON [Concomitant]
  3. RIBARVIN [Concomitant]
  4. ENALAPRIL [Concomitant]
  5. METFORMIN [Concomitant]
  6. GABAPENTIN [Concomitant]
  7. FOLIC ACID [Concomitant]
  8. FILGRASTIM [Concomitant]
  9. PROCRIT [Concomitant]

REACTIONS (1)
  - Rash [None]
